FAERS Safety Report 24818854 (Version 1)
Quarter: 2025Q1

REPORT INFORMATION
  Report Type: Spontaneous
  Country: US (occurrence: None)
  Receive Date: 20250107
  Receipt Date: 20250107
  Transmission Date: 20250408
  Serious: Yes (Disabling)
  Sender: FDA-CTU
  Company Number: None

PATIENT
  Age: 67 Year
  Sex: Male
  Weight: 108 kg

DRUGS (17)
  1. LOSARTAN POTASSIUM [Suspect]
     Active Substance: LOSARTAN POTASSIUM
     Indication: Blood pressure inadequately controlled
     Dosage: OTHER QUANTITY : 2 TABLET(S);?FREQUENCY : DAILY;?
     Route: 048
     Dates: start: 20241202, end: 20250102
  2. DEVICE [Concomitant]
     Active Substance: DEVICE
  3. DEVICE [Concomitant]
     Active Substance: DEVICE
  4. TAMSULOSIN [Concomitant]
     Active Substance: TAMSULOSIN
  5. METFORMIN [Concomitant]
     Active Substance: METFORMIN HYDROCHLORIDE
  6. XARELTO [Concomitant]
     Active Substance: RIVAROXABAN
  7. GABAPENTIN [Concomitant]
     Active Substance: GABAPENTIN
  8. DULOXETINE [Concomitant]
     Active Substance: DULOXETINE
  9. SITAGLIPTIN [Concomitant]
     Active Substance: SITAGLIPTIN
  10. Atorvastatin Calicum [Concomitant]
  11. METOPROLOL SUCCINATE [Concomitant]
     Active Substance: METOPROLOL SUCCINATE
  12. PANTOPRAZOLE SODIUM [Concomitant]
     Active Substance: PANTOPRAZOLE SODIUM
  13. Oxyvutynin Chloride [Concomitant]
  14. EMPAGLIFLOZIN [Concomitant]
     Active Substance: EMPAGLIFLOZIN
  15. ALLOPURINOL [Concomitant]
     Active Substance: ALLOPURINOL
  16. EZETIMIBE [Concomitant]
     Active Substance: EZETIMIBE
  17. NM-6603 [Concomitant]
     Active Substance: NM-6603

REACTIONS (5)
  - Dyspnoea [None]
  - Chest discomfort [None]
  - Feeling abnormal [None]
  - Therapy cessation [None]
  - Product quality issue [None]

NARRATIVE: CASE EVENT DATE: 20241228
